FAERS Safety Report 9290410 (Version 2)
Quarter: 2013Q3

REPORT INFORMATION
  Report Type: Spontaneous
  Country: FR (occurrence: FR)
  Receive Date: 20130515
  Receipt Date: 20130712
  Transmission Date: 20140515
  Serious: Yes (Hospitalization)
  Sender: FDA-Public Use
  Company Number: FR-PFIZER INC-2013141940

PATIENT
  Age: 83 Year
  Sex: Female

DRUGS (9)
  1. DALACINE [Suspect]
     Dosage: UNK
     Route: 048
     Dates: start: 20130312, end: 20130331
  2. VANCOMYCIN SANDOZ [Suspect]
     Dosage: UNK
     Route: 042
     Dates: start: 20130307, end: 20130323
  3. BISOPROLOL [Concomitant]
  4. DIGOXINE [Concomitant]
  5. AMIODARONE [Concomitant]
  6. OXYNORM [Concomitant]
  7. DUROGESIC [Concomitant]
  8. ATARAX [Concomitant]
  9. BACTRIM [Concomitant]
     Dosage: UNK
     Dates: start: 20130323

REACTIONS (1)
  - Drug reaction with eosinophilia and systemic symptoms [Recovered/Resolved]
